FAERS Safety Report 5760279-0 (Version None)
Quarter: 2008Q2

REPORT INFORMATION
  Report Type: 
  Country: None (occurrence: None)
  Receive Date: 20080605
  Receipt Date: 20080526
  Transmission Date: 20081010
  Serious: Yes (Death, Hospitalization, Other)
  Sender: FDA-Public Use
  Company Number: PT-PFIZER INC-2008043378

PATIENT
  Age: 77 Year
  Sex: Male

DRUGS (6)
  1. SUTENT [Suspect]
     Indication: METASTATIC RENAL CELL CARCINOMA
     Route: 048
  2. TRYPTIZOL [Concomitant]
  3. TRAMADOL HCL [Concomitant]
  4. OMNIC [Concomitant]
  5. LORAZEPAM [Concomitant]
  6. METOCLOPRAMIDE [Concomitant]

REACTIONS (3)
  - CEREBROVASCULAR ACCIDENT [None]
  - PLATELET COUNT [None]
  - PNEUMONIA [None]
